FAERS Safety Report 5991037-X (Version None)
Quarter: 2008Q4

REPORT INFORMATION
  Report Type: 
  Country: None (occurrence: None)
  Receive Date: 20081202
  Receipt Date: 20080115
  Transmission Date: 20090506
  Serious: Yes (Disabling)
  Sender: FDA-Public Use
  Company Number: WAES 0704USA06009

PATIENT
  Age: 54 Year
  Sex: Female
  Weight: 71.6683 kg

DRUGS (2)
  1. FOSAMAX [Suspect]
     Indication: ARTHRITIS
     Dosage: 70 MG/PO
     Route: 048
     Dates: start: 20040715, end: 20050801
  2. FOSAMAX [Suspect]
     Indication: OSTEOPOROSIS
     Dosage: 70 MG/PO
     Route: 048
     Dates: start: 20040715, end: 20050801

REACTIONS (25)
  - ANXIETY [None]
  - BIPOLAR DISORDER [None]
  - CARDIAC MURMUR [None]
  - CHEST PAIN [None]
  - CHRONIC OBSTRUCTIVE PULMONARY DISEASE [None]
  - DEPRESSION [None]
  - DRUG ABUSE [None]
  - DYSLIPIDAEMIA [None]
  - EMOTIONAL DISORDER [None]
  - GINGIVAL PAIN [None]
  - GOUT [None]
  - HYPERLIPIDAEMIA [None]
  - HYPERSENSITIVITY [None]
  - HYPERTENSION [None]
  - JAW DISORDER [None]
  - LYMPHADENOPATHY [None]
  - OSTEOARTHRITIS [None]
  - OSTEONECROSIS [None]
  - PANIC ATTACK [None]
  - PRINZMETAL ANGINA [None]
  - RENAL FAILURE [None]
  - RHINITIS ALLERGIC [None]
  - SEASONAL ALLERGY [None]
  - SINUSITIS [None]
  - TOOTH DISORDER [None]
